FAERS Safety Report 8474104-0 (Version None)
Quarter: 2012Q2

REPORT INFORMATION
  Report Type: 
  Country: None (occurrence: None)
  Receive Date: 20120628
  Receipt Date: 20110516
  Transmission Date: 20120825
  Serious: Yes (Other)
  Sender: FDA-Public Use
  Company Number: US-MYLANLABS-2011S1009983

PATIENT
  Age: 52 Year
  Sex: Male

DRUGS (9)
  1. PLAVIX [Concomitant]
  2. TEMAZEPAM [Concomitant]
  3. FLUPHENAZINE HCL [Concomitant]
  4. ACCOLATE [Concomitant]
  5. ASPIRIN [Concomitant]
  6. LORAZEPAM [Concomitant]
  7. CLOZAPINE [Suspect]
     Dates: end: 20110415
  8. THEOPHYLLINE [Concomitant]
  9. BENZTROPINE MESYLATE [Concomitant]

REACTIONS (1)
  - GRANULOCYTOPENIA [None]
